FAERS Safety Report 20083650 (Version 2)
Quarter: 2021Q4

REPORT INFORMATION
  Report Type: Spontaneous
  Country: FR (occurrence: FR)
  Receive Date: 20211118
  Receipt Date: 20211126
  Transmission Date: 20220304
  Serious: Yes (Other)
  Sender: FDA-Public Use
  Company Number: FR-BRISTOL-MYERS SQUIBB COMPANY-BMS-2021-114466

PATIENT
  Age: 72 Year
  Sex: Male
  Weight: 89 kg

DRUGS (2)
  1. OPDIVO [Suspect]
     Active Substance: NIVOLUMAB
     Indication: Pleural mesothelioma malignant
     Dosage: 360 MILLIGRAM, Q3WK
     Route: 042
     Dates: start: 20210803, end: 20210803
  2. YERVOY [Suspect]
     Active Substance: IPILIMUMAB
     Indication: Pleural mesothelioma malignant
     Dosage: 90 MG (1 MG/KG EVERY 6 WEEKS)
     Route: 042
     Dates: start: 20210803, end: 20210803

REACTIONS (1)
  - Drug-induced liver injury [Unknown]
